FAERS Safety Report 9921771 (Version 6)
Quarter: 2016Q4

REPORT INFORMATION
  Report Type: Spontaneous
  Country: US (occurrence: US)
  Receive Date: 20140225
  Receipt Date: 20161101
  Transmission Date: 20170207
  Serious: Yes (Hospitalization, Other)
  Sender: FDA-Public Use
  Company Number: US-PFIZER INC-2014049246

PATIENT
  Age: 72 Year
  Sex: Female
  Weight: 55.79 kg

DRUGS (35)
  1. EFFEXOR [Concomitant]
     Active Substance: VENLAFAXINE HYDROCHLORIDE
     Dosage: 37.5 MG, DAILY
  2. COUMADIN [Concomitant]
     Active Substance: WARFARIN SODIUM
     Indication: PROPHYLAXIS
     Dosage: 2.5 MG, DAILY
  3. NEURONTIN [Concomitant]
     Active Substance: GABAPENTIN
     Dosage: 300 MG, 3X/DAY
  4. ZANAFLEX [Concomitant]
     Active Substance: TIZANIDINE HYDROCHLORIDE
     Indication: MUSCLE SPASMS
     Dosage: 2 MG, AS NEEDED (1/2 TO 1 TABLET BY MOUTH FOUR TIMES A DAY IF NEEDED)
     Route: 048
     Dates: start: 20160907
  5. VITAMIN C [Concomitant]
     Active Substance: ASCORBIC ACID
     Dosage: UNK UNK, DAILY
  6. VITAMIN A [Concomitant]
     Active Substance: VITAMIN A
     Dosage: UNK UNK, DAILY
  7. PROTONIX [Concomitant]
     Active Substance: PANTOPRAZOLE SODIUM
     Dosage: 40 MG, DAILY (EVERY MORNING)
     Route: 048
     Dates: start: 20160809
  8. REVATIO [Suspect]
     Active Substance: SILDENAFIL CITRATE
     Indication: PULMONARY HYPERTENSION
     Dosage: 20 MG, 3X/DAY
     Dates: start: 20090408
  9. REVATIO [Suspect]
     Active Substance: SILDENAFIL CITRATE
     Indication: PULMONARY ARTERIAL HYPERTENSION
     Dosage: 20 MG, DAILY
     Route: 048
  10. REVATIO [Suspect]
     Active Substance: SILDENAFIL CITRATE
     Dosage: 20 MG, 3X/DAY
  11. AMITRIPTYLINE [Concomitant]
     Active Substance: AMITRIPTYLINE
     Dosage: 10 MG, DAILY (AT NIGHT TIME)
  12. ADVAIR HFA [Concomitant]
     Active Substance: FLUTICASONE PROPIONATE\SALMETEROL XINAFOATE
     Indication: ASTHMA
     Dosage: 1 DF, 2X/DAY (FLUTICASONE PROPIONATE: 250, SALMETEROL XINAFOATE: 50)
     Route: 055
     Dates: start: 20140207
  13. BENTYL [Concomitant]
     Active Substance: DICYCLOMINE HYDROCHLORIDE
     Dosage: 20 MG, 4X/DAY (EVERY 6 (SIX) HOURS)
     Route: 048
     Dates: start: 20160526
  14. REGLAN [Concomitant]
     Active Substance: METOCLOPRAMIDE HYDROCHLORIDE
     Dosage: 10 MG, 4X/DAY
     Route: 048
  15. VITAMIN D [Concomitant]
     Active Substance: CHOLECALCIFEROL
     Dosage: 1000 IU, DAILY
     Route: 048
  16. CLONIDINE. [Concomitant]
     Active Substance: CLONIDINE
     Dosage: 100 UG/ML, UNK
  17. ELAVIL [Concomitant]
     Active Substance: AMITRIPTYLINE HYDROCHLORIDE
     Dosage: 10 MG, DAILY (NIGHTLY)
     Route: 048
  18. MEDROL [Concomitant]
     Active Substance: METHYLPREDNISOLONE
     Dosage: 4 MG, AS DIRECTED
     Route: 055
     Dates: start: 20161009, end: 20161016
  19. VIBRAMYCIN [Concomitant]
     Active Substance: DOXYCYCLINE
     Dosage: 100 MG, 2X/DAY
     Route: 048
     Dates: start: 20160920, end: 20161018
  20. REVATIO [Suspect]
     Active Substance: SILDENAFIL CITRATE
     Dosage: 20 MG, 3X/DAY
     Route: 048
     Dates: start: 20160728
  21. XANAX [Concomitant]
     Active Substance: ALPRAZOLAM
     Indication: ANXIETY
     Dosage: 0.5 MG, 2X/DAY
     Route: 048
     Dates: start: 20160810
  22. STOOL SOFTENER (DOCUSATE CALCIUM) [Concomitant]
     Active Substance: DOCUSATE CALCIUM
     Dosage: UNK
     Route: 048
  23. VITAMIN E [Concomitant]
     Active Substance: .ALPHA.-TOCOPHEROL
     Dosage: UNK UNK, DAILY
  24. ZOFRAN [Concomitant]
     Active Substance: ONDANSETRON HYDROCHLORIDE
     Indication: NAUSEA
     Dosage: 4 MG, AS NEEDED (EVERY 8 (EIGHT) HOURS)
     Route: 048
  25. DILAUDID [Concomitant]
     Active Substance: HYDROMORPHONE HYDROCHLORIDE
     Dosage: 15 MG/ML, UNK
  26. ATARAX [Concomitant]
     Active Substance: HYDROXYZINE\HYDROXYZINE HYDROCHLORIDE
     Indication: PRURITUS
     Dosage: 25 MG, 3X/DAY
     Route: 048
     Dates: start: 20161004, end: 20161017
  27. PREDNISONE. [Concomitant]
     Active Substance: PREDNISONE
     Indication: ASTHMA
  28. BUPIVACAINE. [Concomitant]
     Active Substance: BUPIVACAINE
     Dosage: 10 MG/ML, UNK
  29. PHENERGAN [Concomitant]
     Active Substance: PROMETHAZINE HYDROCHLORIDE
     Dosage: 25 MG, AS NEEDED (EVERY 6 (SIX) HOURS, TAKE ONE TO THREE TABLETS DAILY)
     Route: 048
  30. LASIX [Concomitant]
     Active Substance: FUROSEMIDE
     Indication: FLUID OVERLOAD
     Dosage: 10 MG, DAILY
  31. LASIX [Concomitant]
     Active Substance: FUROSEMIDE
     Indication: OEDEMA PERIPHERAL
  32. VITAMIN B12 [Concomitant]
     Active Substance: CYANOCOBALAMIN
     Dosage: UNK UNK, DAILY
  33. KLOR-CON [Concomitant]
     Active Substance: POTASSIUM CHLORIDE
     Dosage: 10 MEQ, 2X/DAY
     Route: 048
     Dates: start: 20160722
  34. K-TAB [Concomitant]
     Active Substance: POTASSIUM CHLORIDE
     Dosage: 10 MEQ, 2X/DAY
     Route: 048
     Dates: start: 20160722
  35. CARAFATE [Concomitant]
     Active Substance: SUCRALFATE
     Dosage: 1 G, 4X/DAY (BEFORE MEALS AND NIGHTLY)
     Route: 048
     Dates: start: 20160126

REACTIONS (3)
  - Malaise [Recovered/Resolved]
  - Dehydration [Recovered/Resolved]
  - Diverticulitis [Recovered/Resolved]
